FAERS Safety Report 4840783-X (Version None)
Quarter: 2005Q4

REPORT INFORMATION
  Report Type: 
  Country: None (occurrence: None)
  Receive Date: 20051130
  Receipt Date: 20040928
  Transmission Date: 20060501
  Serious: No
  Sender: FDA-Public Use
  Company Number: US-BRISTOL-MYERS SQUIBB COMPANY-12714721

PATIENT
  Age: 55 Year
  Sex: Male

DRUGS (2)
  1. AVALIDE [Suspect]
     Route: 048
     Dates: start: 20030101
  2. ZIAC [Suspect]
     Indication: HYPERTENSION
     Dosage: 10MG/6.25MG
     Dates: start: 20020101

REACTIONS (6)
  - BLOOD URIC ACID INCREASED [None]
  - DYSPEPSIA [None]
  - GOUT [None]
  - INCREASED APPETITE [None]
  - JOINT SPRAIN [None]
  - NEPHROLITHIASIS [None]
